FAERS Safety Report 18924627 (Version 2)
Quarter: 2021Q3

REPORT INFORMATION
  Report Type: Spontaneous
  Country: US (occurrence: US)
  Receive Date: 20210223
  Receipt Date: 20210928
  Transmission Date: 20211014
  Serious: No
  Sender: FDA-Public Use
  Company Number: US-SA-2021SA059991

PATIENT
  Sex: Female

DRUGS (1)
  1. DUPIXENT [Suspect]
     Active Substance: DUPILUMAB
     Indication: DERMATITIS ATOPIC
     Dosage: INJECT 1 SYRINGE (300 MG) UNDER THE SKIN
     Dates: start: 2019

REACTIONS (11)
  - Skin haemorrhage [Unknown]
  - Rash [Unknown]
  - Lichen sclerosus [Unknown]
  - Ocular hyperaemia [Unknown]
  - Eczema [Unknown]
  - Product dose omission issue [Unknown]
  - Skin exfoliation [Unknown]
  - Dry skin [Unknown]
  - Dry eye [Unknown]
  - Crepitations [Unknown]
  - Pruritus [Unknown]
